FAERS Safety Report 20559368 (Version 1)
Quarter: 2022Q1

REPORT INFORMATION
  Report Type: Spontaneous
  Country: US (occurrence: US)
  Receive Date: 20220307
  Receipt Date: 20220307
  Transmission Date: 20220423
  Serious: Yes (Other)
  Sender: FDA-Public Use
  Company Number: US-GLAXOSMITHKLINE-US2022GSK039697

PATIENT
  Sex: Female

DRUGS (8)
  1. ZANTAC [Suspect]
     Active Substance: RANITIDINE HYDROCHLORIDE
     Indication: Gastric ulcer
     Dosage: UNKNOWN AT THIS TIME, WE
     Route: 065
     Dates: start: 201007, end: 201809
  2. ZANTAC [Suspect]
     Active Substance: RANITIDINE HYDROCHLORIDE
     Indication: Hypersensitivity
  3. ZANTAC [Suspect]
     Active Substance: RANITIDINE HYDROCHLORIDE
     Indication: Gastric ulcer
     Dosage: UNKNOWN AT THIS TIME, WE
     Route: 065
     Dates: start: 201007, end: 201809
  4. ZANTAC [Suspect]
     Active Substance: RANITIDINE HYDROCHLORIDE
     Indication: Hypersensitivity
  5. ZANTAC [Suspect]
     Active Substance: RANITIDINE HYDROCHLORIDE
     Indication: Gastric ulcer
     Dosage: UNKNOWN AT THIS TIME, WE
     Route: 065
     Dates: start: 201007, end: 201809
  6. ZANTAC [Suspect]
     Active Substance: RANITIDINE HYDROCHLORIDE
     Indication: Hypersensitivity
  7. RANITIDINE [Suspect]
     Active Substance: RANITIDINE
     Indication: Gastric ulcer
     Dosage: UNKNOWN AT THIS TIME, WE
     Route: 065
     Dates: start: 201007, end: 201809
  8. RANITIDINE [Suspect]
     Active Substance: RANITIDINE
     Indication: Hypersensitivity

REACTIONS (1)
  - Bladder cancer [Unknown]
